FAERS Safety Report 5327653-8 (Version None)
Quarter: 2007Q2

REPORT INFORMATION
  Report Type: 
  Country: None (occurrence: None)
  Receive Date: 20070517
  Receipt Date: 20070511
  Transmission Date: 20071010
  Serious: Yes (Hospitalization)
  Sender: FDA-Public Use
  Company Number: B0467184A

PATIENT
  Age: 2 Year
  Sex: Female
  Weight: 9.7 kg

DRUGS (12)
  1. ALKERAN [Suspect]
     Indication: AUTOLOGOUS BONE MARROW TRANSPLANTATION THERAPY
     Dosage: 30MG SEE DOSAGE TEXT
     Route: 042
     Dates: start: 20060928, end: 20061005
  2. THIOTEPA [Suspect]
     Indication: AUTOLOGOUS BONE MARROW TRANSPLANTATION THERAPY
     Route: 042
     Dates: start: 20060928, end: 20061005
  3. BROACT [Concomitant]
     Indication: INFECTION
     Dosage: 250MG FOUR TIMES PER DAY
     Route: 042
     Dates: start: 20060929, end: 20061024
  4. AZACTAM [Concomitant]
     Indication: INFECTION
     Dosage: 250MG FOUR TIMES PER DAY
     Route: 042
     Dates: start: 20060929, end: 20061009
  5. ACYCLOVIR [Concomitant]
     Indication: INFECTION
     Dosage: 50MG TWICE PER DAY
     Route: 042
     Dates: start: 20061003, end: 20061028
  6. SULPERAZON [Concomitant]
     Indication: INFECTION
     Dosage: 250MG FOUR TIMES PER DAY
     Route: 042
     Dates: start: 20061005, end: 20061009
  7. GAMIMUNE N 5% [Concomitant]
     Indication: INFECTION
     Dosage: 2.5MG PER DAY
     Route: 042
     Dates: start: 20061007, end: 20061007
  8. FIRSTCIN [Concomitant]
     Indication: INFECTION
     Dosage: 250MG FOUR TIMES PER DAY
     Route: 042
     Dates: start: 20061009, end: 20061018
  9. DIFLUCAN [Concomitant]
     Indication: INFECTION
     Dosage: 50MG PER DAY
     Route: 042
     Dates: start: 20061005, end: 20061028
  10. TIENAM [Concomitant]
     Indication: INFECTION
     Dosage: 250MG FOUR TIMES PER DAY
     Route: 042
     Dates: start: 20061019, end: 20061028
  11. PIRARUBICIN [Concomitant]
     Route: 065
  12. ENDOXAN [Concomitant]
     Route: 065

REACTIONS (7)
  - BRAIN NATRIURETIC PEPTIDE INCREASED [None]
  - CARDIAC FAILURE [None]
  - CARDIOMEGALY [None]
  - INFECTION [None]
  - OXYGEN SATURATION DECREASED [None]
  - PULMONARY CONGESTION [None]
  - PYREXIA [None]
